FAERS Safety Report 6598086-1 (Version None)
Quarter: 2010Q1

REPORT INFORMATION
  Report Type: 
  Country: None (occurrence: None)
  Receive Date: 20100216
  Receipt Date: 20100210
  Transmission Date: 20100710
  Serious: Yes (Life-Threatening, Other)
  Sender: FDA-Public Use
  Company Number: 2010SP008150

PATIENT
  Age: 68 Year
  Sex: Male
  Weight: 93.8946 kg

DRUGS (6)
  1. K-DUR             (POTASSIUM CHLORIDE /00031402/ ) [Suspect]
     Dosage: 20.0 MEQ; PO
     Route: 048
  2. INDAPAMIDE [Concomitant]
  3. NORVASC [Concomitant]
  4. PERINDOPRIL [Concomitant]
  5. SPIRONOLACTONE [Concomitant]
  6. VALSARTAN [Concomitant]

REACTIONS (2)
  - CARDIAC FAILURE [None]
  - HAEMOGLOBIN DECREASED [None]
